FAERS Safety Report 4476580-7 (Version None)
Quarter: 2004Q4

REPORT INFORMATION
  Report Type: 
  Country: None (occurrence: None)
  Receive Date: 20041013
  Receipt Date: 20040923
  Transmission Date: 20050328
  Serious: Yes (Other)
  Sender: FDA-Public Use
  Company Number: USA040978187

PATIENT
  Age: 76 Year
  Sex: Male
  Weight: 96 kg

DRUGS (3)
  1. GEMZAR [Suspect]
     Indication: LUNG NEOPLASM MALIGNANT
     Dates: start: 20031201, end: 20031222
  2. CARBOPLATIN (CARBOPLATIN SANOFI-SYNTHELABO) [Concomitant]
  3. TAXOL [Concomitant]

REACTIONS (7)
  - BREAST OEDEMA [None]
  - DYSPHAGIA [None]
  - INFECTION [None]
  - INFUSION SITE BURNING [None]
  - RECALL PHENOMENON [None]
  - SKIN REACTION [None]
  - SWELLING [None]
